FAERS Safety Report 4381986-0 (Version None)
Quarter: 2004Q2

REPORT INFORMATION
  Report Type: 
  Country: None (occurrence: None)
  Receive Date: 20040615
  Receipt Date: 20040602
  Transmission Date: 20050107
  Serious: Yes (Other)
  Sender: FDA-Public Use
  Company Number: TUK2004A00062

PATIENT
  Sex: Female

DRUGS (2)
  1. ACTOS [Suspect]
     Indication: DIABETES MELLITUS
     Dosage: ORAL; DAYS
     Route: 048
     Dates: start: 20040201, end: 20040401
  2. ATENOLOL [Concomitant]

REACTIONS (1)
  - PSORIASIS [None]
